FAERS Safety Report 24691498 (Version 4)
Quarter: 2024Q4

REPORT INFORMATION
  Report Type: Report from Study
  Country: FR (occurrence: FR)
  Receive Date: 20241203
  Receipt Date: 20241230
  Transmission Date: 20250115
  Serious: Yes (Death, Hospitalization)
  Sender: MYLAN
  Company Number: FR-SA-SAC20230925001451

PATIENT
  Age: 75 Year
  Sex: Female
  Weight: 61.5 kg

DRUGS (44)
  1. DEXAMETHASONE [Suspect]
     Active Substance: DEXAMETHASONE
     Indication: Plasma cell myeloma refractory
     Dosage: 20 MILLIGRAM, QW
     Route: 065
     Dates: start: 20220107, end: 20220131
  2. DEXAMETHASONE [Suspect]
     Active Substance: DEXAMETHASONE
     Dosage: 20 MILLIGRAM, QW
     Route: 065
     Dates: start: 20220221, end: 20220320
  3. DEXAMETHASONE [Suspect]
     Active Substance: DEXAMETHASONE
     Dosage: 20 MILLIGRAM, QW
     Route: 065
     Dates: start: 20220321, end: 20220418
  4. DEXAMETHASONE [Suspect]
     Active Substance: DEXAMETHASONE
     Dosage: 20 MILLIGRAM, QW
     Route: 065
     Dates: start: 20220419, end: 20220515
  5. DEXAMETHASONE [Suspect]
     Active Substance: DEXAMETHASONE
     Dosage: 20 MILLIGRAM, QW
     Route: 065
     Dates: start: 20220516, end: 20220613
  6. DEXAMETHASONE [Suspect]
     Active Substance: DEXAMETHASONE
     Dosage: 20 MILLIGRAM, QW
     Route: 065
     Dates: start: 20220614, end: 20220710
  7. DEXAMETHASONE [Suspect]
     Active Substance: DEXAMETHASONE
     Dosage: 20 MILLIGRAM, QW
     Route: 065
     Dates: start: 20220711, end: 20220807
  8. DEXAMETHASONE [Suspect]
     Active Substance: DEXAMETHASONE
     Dosage: 20 MILLIGRAM, QW
     Route: 065
     Dates: start: 20220808, end: 20220905
  9. DEXAMETHASONE [Suspect]
     Active Substance: DEXAMETHASONE
     Dosage: 20 MILLIGRAM, QW
     Route: 065
     Dates: start: 20230726, end: 20230824
  10. DEXAMETHASONE [Suspect]
     Active Substance: DEXAMETHASONE
     Dosage: 20 MILLIGRAM, QW
     Route: 065
     Dates: start: 20230619, end: 20230717
  11. DEXAMETHASONE [Suspect]
     Active Substance: DEXAMETHASONE
     Dosage: 20 MILLIGRAM, QW
     Route: 065
     Dates: start: 20230517, end: 20230614
  12. DEXAMETHASONE [Suspect]
     Active Substance: DEXAMETHASONE
     Dosage: 20 MILLIGRAM, QW
     Route: 065
     Dates: start: 20230411, end: 20230509
  13. DEXAMETHASONE [Suspect]
     Active Substance: DEXAMETHASONE
     Dosage: 20 MILLIGRAM, QW
     Route: 065
     Dates: start: 20230313, end: 20230410
  14. ISATUXIMAB [Suspect]
     Active Substance: ISATUXIMAB
     Indication: Plasma cell myeloma refractory
     Dosage: 630 MILLIGRAM, QW
     Route: 065
     Dates: start: 20220107, end: 20220131
  15. ISATUXIMAB [Suspect]
     Active Substance: ISATUXIMAB
     Dosage: 630 MILLIGRAM, Q2W
     Route: 065
     Dates: start: 20220221, end: 20220320
  16. ISATUXIMAB [Suspect]
     Active Substance: ISATUXIMAB
     Dosage: 630 MILLIGRAM, Q2W
     Route: 065
     Dates: start: 20220321, end: 20220418
  17. ISATUXIMAB [Suspect]
     Active Substance: ISATUXIMAB
     Dosage: 630 MILLIGRAM, Q2W
     Route: 065
     Dates: start: 20220419, end: 20220515
  18. ISATUXIMAB [Suspect]
     Active Substance: ISATUXIMAB
     Dosage: 630 MILLIGRAM, Q2W
     Dates: start: 20220516, end: 20220613
  19. ISATUXIMAB [Suspect]
     Active Substance: ISATUXIMAB
     Dosage: 630 MILLIGRAM, Q2W
     Dates: start: 20220614, end: 20220710
  20. ISATUXIMAB [Suspect]
     Active Substance: ISATUXIMAB
     Dosage: 630 MILLIGRAM, QW
     Route: 065
     Dates: start: 20220711, end: 20220807
  21. ISATUXIMAB [Suspect]
     Active Substance: ISATUXIMAB
     Dosage: 700 MILLIGRAM, BIWEEKLY
     Route: 065
     Dates: start: 20230726, end: 20230822
  22. ISATUXIMAB [Suspect]
     Active Substance: ISATUXIMAB
     Dosage: 700 MILLIGRAM, BIWEEKLY
     Route: 065
     Dates: start: 20230619, end: 20230717
  23. ISATUXIMAB [Suspect]
     Active Substance: ISATUXIMAB
     Dosage: 700 MILLIGRAM, BIWEEKLY
     Dates: start: 20230517, end: 20230611
  24. ISATUXIMAB [Suspect]
     Active Substance: ISATUXIMAB
     Dosage: 700 MILLIGRAM, BIWEEKLY
     Route: 065
     Dates: start: 20230411, end: 20230509
  25. ISATUXIMAB [Suspect]
     Active Substance: ISATUXIMAB
     Dosage: 700 MILLIGRAM, BIWEEKLY
     Route: 065
     Dates: start: 20230313, end: 20230410
  26. ISATUXIMAB [Suspect]
     Active Substance: ISATUXIMAB
     Dosage: 720 MILLIGRAM, BIWEEKLY
     Route: 065
     Dates: start: 20230824, end: 20230907
  27. POMALIDOMIDE [Suspect]
     Active Substance: POMALIDOMIDE
     Indication: Plasma cell myeloma refractory
     Dosage: 2 MILLIGRAM, QD
     Route: 065
     Dates: start: 20220107, end: 20220124
  28. POMALIDOMIDE [Suspect]
     Active Substance: POMALIDOMIDE
     Dosage: 2 MILLIGRAM, QD
     Route: 065
     Dates: start: 20220221, end: 20220320
  29. POMALIDOMIDE [Suspect]
     Active Substance: POMALIDOMIDE
     Dosage: 2 MILLIGRAM, QD
     Route: 065
     Dates: start: 20220321, end: 20220418
  30. POMALIDOMIDE [Suspect]
     Active Substance: POMALIDOMIDE
     Dosage: 2 MILLIGRAM, QD
     Route: 065
     Dates: start: 20220419, end: 20220515
  31. POMALIDOMIDE [Suspect]
     Active Substance: POMALIDOMIDE
     Dosage: 4 MILLIGRAM, QD
     Route: 065
     Dates: start: 20220516, end: 20220613
  32. POMALIDOMIDE [Suspect]
     Active Substance: POMALIDOMIDE
     Dosage: 4 MILLIGRAM, QD
     Route: 065
     Dates: start: 20220614, end: 20220710
  33. POMALIDOMIDE [Suspect]
     Active Substance: POMALIDOMIDE
     Dosage: 4 MILLIGRAM, QD
     Route: 065
     Dates: start: 20220711, end: 20220807
  34. POMALIDOMIDE [Suspect]
     Active Substance: POMALIDOMIDE
     Dosage: 4 MILLIGRAM, QD
     Route: 065
     Dates: start: 20220808, end: 20230905
  35. POMALIDOMIDE [Suspect]
     Active Substance: POMALIDOMIDE
     Dosage: 3 MILLIGRAM, QD
     Route: 065
     Dates: start: 20230726, end: 20230823
  36. POMALIDOMIDE [Suspect]
     Active Substance: POMALIDOMIDE
     Dosage: 3 MILLIGRAM, QD
     Route: 065
     Dates: start: 20230619, end: 20230716
  37. POMALIDOMIDE [Suspect]
     Active Substance: POMALIDOMIDE
     Dosage: 3 MILLIGRAM, QD
     Route: 065
     Dates: start: 20230517, end: 20230614
  38. POMALIDOMIDE [Suspect]
     Active Substance: POMALIDOMIDE
     Dosage: 3 MILLIGRAM, QD
     Route: 065
     Dates: start: 20230411, end: 20230509
  39. POMALIDOMIDE [Suspect]
     Active Substance: POMALIDOMIDE
     Dosage: 3 MILLIGRAM, QD
     Route: 065
     Dates: start: 20230313, end: 20230410
  40. POMALIDOMIDE [Suspect]
     Active Substance: POMALIDOMIDE
     Dosage: 3 MILLIGRAM, QD
     Route: 065
     Dates: start: 20230824, end: 20230907
  41. DEXCHLORPHENIRAMINE [Concomitant]
     Active Substance: DEXCHLORPHENIRAMINE
     Dosage: UNK
     Route: 065
     Dates: start: 20220107
  42. ACETAMINOPHEN [Concomitant]
     Active Substance: ACETAMINOPHEN
     Dosage: UNK
     Route: 065
     Dates: start: 20220107
  43. BACTRIM [Concomitant]
     Active Substance: SULFAMETHOXAZOLE\TRIMETHOPRIM
     Dosage: UNK
     Route: 065
     Dates: start: 2019
  44. RACECADOTRIL [Concomitant]
     Active Substance: RACECADOTRIL
     Dosage: UNK
     Route: 065
     Dates: start: 20220321, end: 20230821

REACTIONS (11)
  - Colitis ischaemic [Fatal]
  - General physical health deterioration [Fatal]
  - Septic shock [Fatal]
  - Shock [Fatal]
  - Multiple organ dysfunction syndrome [Fatal]
  - Diarrhoea [Recovered/Resolved]
  - Renal failure [Recovered/Resolved with Sequelae]
  - Bacterial colitis [Recovered/Resolved with Sequelae]
  - Retinal vascular occlusion [Not Recovered/Not Resolved]
  - Intestinal dilatation [Recovered/Resolved]
  - Anaemia [Recovered/Resolved]

NARRATIVE: CASE EVENT DATE: 20220311
